FAERS Safety Report 20857214 (Version 2)
Quarter: 2022Q3

REPORT INFORMATION
  Report Type: Spontaneous
  Country: US (occurrence: US)
  Receive Date: 20220520
  Receipt Date: 20220711
  Transmission Date: 20221026
  Serious: No
  Sender: FDA-Public Use
  Company Number: US-SA-SAC20220518001152

PATIENT
  Age: 55 Year
  Sex: Female

DRUGS (1)
  1. DUPIXENT [Suspect]
     Active Substance: DUPILUMAB
     Dosage: 300 MG (FREQUENCY:OTHER)
     Route: 058
     Dates: start: 202204

REACTIONS (3)
  - Product dose omission issue [Unknown]
  - Drug effect less than expected [Unknown]
  - Skin fissures [Unknown]

NARRATIVE: CASE EVENT DATE: 20220101
